FAERS Safety Report 6284846-3 (Version None)
Quarter: 2009Q3

REPORT INFORMATION
  Report Type: 
  Country: None (occurrence: None)
  Receive Date: 20090727
  Receipt Date: 20090721
  Transmission Date: 20100115
  Serious: Yes (Hospitalization)
  Sender: FDA-Public Use
  Company Number: A0751909A

PATIENT
  Age: 31 Year
  Sex: Female
  Weight: 115 kg

DRUGS (7)
  1. AVANDIA [Suspect]
     Dosage: 8MG PER DAY
     Route: 048
     Dates: start: 20030627, end: 20061201
  2. INSULIN [Concomitant]
  3. XANAX [Concomitant]
  4. ZYPREXA [Concomitant]
  5. WELLBUTRIN [Concomitant]
  6. LIPITOR [Concomitant]
  7. NYSTATIN [Concomitant]

REACTIONS (4)
  - CARDIAC FAILURE CONGESTIVE [None]
  - CEREBROVASCULAR ACCIDENT [None]
  - CORONARY ARTERY DISEASE [None]
  - MYOCARDIAL INFARCTION [None]
